FAERS Safety Report 7797868-8 (Version None)
Quarter: 2011Q4

REPORT INFORMATION
  Report Type: 
  Country: None (occurrence: None)
  Receive Date: 20111005
  Receipt Date: 20111003
  Transmission Date: 20120403
  Serious: Yes (Hospitalization, Other)
  Sender: FDA-Public Use
  Company Number: US-MERCK-1103USA00998

PATIENT
  Age: 64 Year
  Sex: Female

DRUGS (8)
  1. PLAVIX [Concomitant]
     Indication: THROMBOSIS
     Route: 048
     Dates: start: 20010101
  2. PRILOSEC [Concomitant]
     Indication: GASTROOESOPHAGEAL REFLUX DISEASE
     Route: 048
     Dates: start: 19960101
  3. FOSAMAX [Suspect]
     Indication: OSTEOPOROSIS
     Route: 048
     Dates: start: 20030701, end: 20080101
  4. LIPITOR [Concomitant]
     Indication: BLOOD CHOLESTEROL
     Route: 048
     Dates: start: 20010101
  5. TOPROL-XL [Concomitant]
     Indication: BLOOD PRESSURE
     Route: 048
     Dates: start: 20010101
  6. FOSAMAX [Suspect]
     Route: 048
     Dates: start: 20080318
  7. ASPIRIN [Concomitant]
     Indication: ANTICOAGULANT THERAPY
     Route: 048
     Dates: start: 19910101
  8. [THERAPY UNSPECIFIED] [Concomitant]
     Route: 065

REACTIONS (22)
  - FALL [None]
  - FRACTURE [None]
  - OSTEONECROSIS OF JAW [None]
  - DEPRESSION [None]
  - ARTHRITIS [None]
  - BRONCHITIS [None]
  - SLEEP DISORDER [None]
  - RHEUMATOID ARTHRITIS [None]
  - HIP FRACTURE [None]
  - BONE DISORDER [None]
  - IMPAIRED HEALING [None]
  - TOOTH DISORDER [None]
  - ORAL INFECTION [None]
  - ABSCESS [None]
  - PAIN [None]
  - AMNESIA [None]
  - GAIT DISTURBANCE [None]
  - RADIUS FRACTURE [None]
  - BLOOD IRON DECREASED [None]
  - FISTULA DISCHARGE [None]
  - CONCUSSION [None]
  - DRY MOUTH [None]
